FAERS Safety Report 13580904 (Version 1)
Quarter: 2017Q2

REPORT INFORMATION
  Report Type: Spontaneous
  Country: FR (occurrence: FR)
  Receive Date: 20170525
  Receipt Date: 20170525
  Transmission Date: 20170830
  Serious: Yes (Other)
  Sender: FDA-Public Use
  Company Number: FR-009507513-1705FRA010673

PATIENT

DRUGS (1)
  1. AERIUS [Suspect]
     Active Substance: DESLORATADINE
     Dosage: UNK
     Route: 048

REACTIONS (2)
  - Tuberculosis [Unknown]
  - Obstructive airways disorder [Unknown]
